FAERS Safety Report 15452257 (Version 2)
Quarter: 2018Q4

REPORT INFORMATION
  Report Type: Spontaneous
  Country: PT (occurrence: PT)
  Receive Date: 20181001
  Receipt Date: 20181029
  Transmission Date: 20190204
  Serious: Yes (Other)
  Sender: FDA-Public Use
  Company Number: PT-PFIZER INC-2018389910

PATIENT
  Age: 38 Year
  Sex: Female

DRUGS (4)
  1. PAMIDRONATE DISODIUM. [Suspect]
     Active Substance: PAMIDRONATE DISODIUM
     Indication: CALCINOSIS
     Dosage: UNK, EVERY 3 MONTHS (QUARTERLY)
     Route: 042
  2. METHOTREXATE SODIUM. [Concomitant]
     Active Substance: METHOTREXATE SODIUM
     Indication: METABOLIC DISORDER
  3. METHOTREXATE SODIUM. [Concomitant]
     Active Substance: METHOTREXATE SODIUM
     Indication: CALCINOSIS
     Dosage: 20 MG, WEEKLY
     Route: 058
  4. PAMIDRONATE DISODIUM. [Suspect]
     Active Substance: PAMIDRONATE DISODIUM
     Indication: METABOLIC DISORDER

REACTIONS (1)
  - Renal colic [Unknown]
